FAERS Safety Report 15496960 (Version 8)
Quarter: 2022Q3

REPORT INFORMATION
  Report Type: Report from Study
  Country: US (occurrence: None)
  Receive Date: 20181015
  Receipt Date: 20220716
  Transmission Date: 20221027
  Serious: Yes (Hospitalization)
  Sender: FDA-Public Use
  Company Number: US-ROCHE-2186872

PATIENT
  Age: 56 Year
  Sex: Female
  Weight: 73.5 kg

DRUGS (75)
  1. ATEZOLIZUMAB [Suspect]
     Active Substance: ATEZOLIZUMAB
     Indication: Ovarian cancer
     Dosage: DATE OF MOST RECENT DOSE OF ATEZOLIZUMAB ON 10/SEP/2018
     Route: 041
     Dates: start: 20180618
  2. PACLITAXEL [Suspect]
     Active Substance: PACLITAXEL
     Indication: Ovarian cancer
     Dosage: DATE OF MOST RECENT DOSE (310 MG) OF PACLITAXEL PRIOR TO ADVERSE EVENT WAS 30/JUL/2018 AND 10/SEP/20
     Route: 042
     Dates: start: 20180618
  3. CARBOPLATIN [Suspect]
     Active Substance: CARBOPLATIN
     Indication: Ovarian cancer
     Dosage: DATE OF MOST RECENT DOSE (563 MG) OF CARBOPLATIN PRIOR TO ADVERSE EVENT WAS 30/JUL/2018 AND 10/SEP/2
     Route: 042
     Dates: start: 20180618
  4. BEVACIZUMAB [Suspect]
     Active Substance: BEVACIZUMAB
     Indication: Ovarian cancer
     Dosage: DATE OF MOST RECENT DOSE(1117.5 MG) OF BEVACIZUMAB PRIOR TO ADVERSE EVENT WAS 30/JUL/2018 AND 10/SEP
     Route: 042
     Dates: start: 20180709
  5. MIRALAX [Concomitant]
     Active Substance: POLYETHYLENE GLYCOL 3350
     Indication: Constipation
     Route: 048
     Dates: start: 20180917
  6. FERROUS SULFATE [Concomitant]
     Active Substance: FERROUS SULFATE
     Indication: Iron deficiency anaemia
     Dates: start: 20180522
  7. ENOXAPARIN [Concomitant]
     Active Substance: ENOXAPARIN
     Indication: Thrombosis prophylaxis
     Dates: start: 20180512
  8. ONDANSETRON [Concomitant]
     Active Substance: ONDANSETRON
     Indication: Nausea
     Dates: start: 20180618
  9. ONDANSETRON [Concomitant]
     Active Substance: ONDANSETRON
     Indication: Vomiting
  10. IBUPROFEN [Concomitant]
     Active Substance: IBUPROFEN
     Indication: Abdominal pain
     Dates: start: 20180509
  11. SERTRALINE [Concomitant]
     Active Substance: SERTRALINE HYDROCHLORIDE
     Indication: Depression
     Dates: start: 20160922, end: 20190312
  12. METFORMIN [Concomitant]
     Active Substance: METFORMIN HYDROCHLORIDE
     Indication: Diabetes mellitus
     Dates: start: 20080702
  13. PROCHLORPERAZINE [Concomitant]
     Active Substance: PROCHLORPERAZINE
     Indication: Nausea
     Dates: start: 20180618
  14. PROCHLORPERAZINE [Concomitant]
     Active Substance: PROCHLORPERAZINE
     Indication: Vomiting
  15. LIDOCAINE\PRILOCAINE [Concomitant]
     Active Substance: LIDOCAINE\PRILOCAINE
     Route: 061
     Dates: start: 20180618
  16. ALBUTEROL [Concomitant]
     Active Substance: ALBUTEROL
     Indication: Dyspnoea
     Dates: start: 20180531
  17. ZOLPIDEM [Concomitant]
     Active Substance: ZOLPIDEM TARTRATE
     Indication: Insomnia
     Dates: start: 20180522
  18. METOPROLOL [Concomitant]
     Active Substance: METOPROLOL
     Indication: Hypertension
  19. LISINOPRIL [Concomitant]
     Active Substance: LISINOPRIL
     Indication: Hypertension
  20. ATORVASTATIN [Concomitant]
     Active Substance: ATORVASTATIN
     Indication: Dyslipidaemia
     Dates: start: 20160104
  21. OXYCODONE [Concomitant]
     Active Substance: OXYCODONE
     Indication: Abdominal pain
     Dates: start: 20180318
  22. CHOLECALCIFEROL [Concomitant]
     Active Substance: CHOLECALCIFEROL
     Indication: Vitamin D
  23. INSULIN GLARGINE [Concomitant]
     Active Substance: INSULIN GLARGINE
     Indication: Diabetes mellitus
     Dates: start: 1998
  24. ASPIRIN [Concomitant]
     Active Substance: ASPIRIN
     Indication: Myocardial infarction
     Dates: start: 20160104
  25. ASPIRIN [Concomitant]
     Active Substance: ASPIRIN
     Indication: Cerebrovascular accident prophylaxis
  26. LORATADINE [Concomitant]
     Active Substance: LORATADINE
     Indication: Seasonal allergy
     Dates: start: 20170917
  27. DOCUSATE [Concomitant]
     Active Substance: DOCUSATE
     Indication: Constipation
  28. MAGNESIUM OXIDE [Concomitant]
     Active Substance: MAGNESIUM OXIDE
     Indication: Hypomagnesaemia
     Dates: start: 20180709
  29. DEXAMETHASONE [Concomitant]
     Active Substance: DEXAMETHASONE
     Indication: Nausea
     Route: 042
     Dates: start: 20180730, end: 20180730
  30. DEXAMETHASONE [Concomitant]
     Active Substance: DEXAMETHASONE
     Indication: Vomiting
     Route: 042
     Dates: start: 20180820, end: 20180820
  31. DEXAMETHASONE [Concomitant]
     Active Substance: DEXAMETHASONE
     Route: 042
     Dates: start: 20180910, end: 20180910
  32. DEXAMETHASONE [Concomitant]
     Active Substance: DEXAMETHASONE
     Route: 042
     Dates: start: 20181008, end: 20181008
  33. DIPHENHYDRAMINE [Concomitant]
     Active Substance: DIPHENHYDRAMINE
     Indication: Infusion related reaction
     Dates: start: 20180730, end: 20180730
  34. DIPHENHYDRAMINE [Concomitant]
     Active Substance: DIPHENHYDRAMINE
     Dates: start: 20180910, end: 20180910
  35. DIPHENHYDRAMINE [Concomitant]
     Active Substance: DIPHENHYDRAMINE
     Dates: start: 20181008, end: 20181008
  36. PALONOSETRON [Concomitant]
     Active Substance: PALONOSETRON
     Indication: Nausea
     Dates: start: 20180820, end: 20180820
  37. PALONOSETRON [Concomitant]
     Active Substance: PALONOSETRON
     Indication: Vomiting
     Dates: start: 20180730, end: 20180730
  38. PALONOSETRON [Concomitant]
     Active Substance: PALONOSETRON
     Dates: start: 20180910, end: 20180910
  39. PALONOSETRON [Concomitant]
     Active Substance: PALONOSETRON
     Dates: start: 20181008, end: 20181008
  40. MAGNESIUM SULFATE [Concomitant]
     Active Substance: MAGNESIUM SULFATE
     Indication: Hypomagnesaemia
     Dates: start: 20180820, end: 20180820
  41. MAGNESIUM SULFATE [Concomitant]
     Active Substance: MAGNESIUM SULFATE
     Dates: start: 20180910, end: 20180910
  42. ACETAMINOPHEN [Concomitant]
     Active Substance: ACETAMINOPHEN
     Indication: Infusion related reaction
     Dates: start: 20180910, end: 20180910
  43. ACETAMINOPHEN [Concomitant]
     Active Substance: ACETAMINOPHEN
     Dates: start: 20181029, end: 20181029
  44. ACETAMINOPHEN [Concomitant]
     Active Substance: ACETAMINOPHEN
     Dates: start: 20181218, end: 20181218
  45. ACETAMINOPHEN [Concomitant]
     Active Substance: ACETAMINOPHEN
     Dates: start: 20190208, end: 20190208
  46. ACETAMINOPHEN [Concomitant]
     Active Substance: ACETAMINOPHEN
     Dates: start: 20190301, end: 20190301
  47. ACETAMINOPHEN [Concomitant]
     Active Substance: ACETAMINOPHEN
     Dates: start: 20190322, end: 20190322
  48. ACETAMINOPHEN [Concomitant]
     Active Substance: ACETAMINOPHEN
     Dates: start: 20190312, end: 20190312
  49. FAMOTIDINE [Concomitant]
     Active Substance: FAMOTIDINE
     Indication: Abdominal discomfort
     Dates: start: 20180910, end: 20180910
  50. FAMOTIDINE [Concomitant]
     Active Substance: FAMOTIDINE
     Dates: start: 20180730, end: 20180730
  51. FAMOTIDINE [Concomitant]
     Active Substance: FAMOTIDINE
     Dates: start: 20181008, end: 20181008
  52. CLONAZEPAM [Concomitant]
     Active Substance: CLONAZEPAM
     Indication: Anxiety
     Dates: start: 20180522
  53. SULFAMETHOXAZOLE\TRIMETHOPRIM [Concomitant]
     Active Substance: SULFAMETHOXAZOLE\TRIMETHOPRIM
     Indication: Dysuria
     Dates: start: 20181009
  54. GABAPENTIN [Concomitant]
     Active Substance: GABAPENTIN
     Indication: Peripheral sensory neuropathy
     Dates: start: 20181006
  55. HEPARIN [Concomitant]
     Active Substance: HEPARIN SODIUM
     Indication: Flushing
     Dates: start: 20180730, end: 20180730
  56. HEPARIN [Concomitant]
     Active Substance: HEPARIN SODIUM
     Dates: start: 20180820, end: 20180820
  57. HEPARIN [Concomitant]
     Active Substance: HEPARIN SODIUM
     Dates: start: 20181008, end: 20181008
  58. HEPARIN [Concomitant]
     Active Substance: HEPARIN SODIUM
     Dates: start: 20181029, end: 20181029
  59. HEPARIN [Concomitant]
     Active Substance: HEPARIN SODIUM
     Dates: start: 20181119, end: 20181119
  60. HEPARIN [Concomitant]
     Active Substance: HEPARIN SODIUM
     Dates: start: 20181218, end: 20181218
  61. HEPARIN [Concomitant]
     Active Substance: HEPARIN SODIUM
     Dates: start: 20190118, end: 20190118
  62. HEPARIN [Concomitant]
     Active Substance: HEPARIN SODIUM
     Dates: start: 20190208, end: 20190208
  63. HEPARIN [Concomitant]
     Active Substance: HEPARIN SODIUM
     Dates: start: 20190301, end: 20190301
  64. HEPARIN [Concomitant]
     Active Substance: HEPARIN SODIUM
     Dates: start: 20190322, end: 20190322
  65. HEPARIN [Concomitant]
     Active Substance: HEPARIN SODIUM
     Dates: start: 20190312, end: 20190312
  66. INFLUENZA VIRUS VACCINE [Concomitant]
     Active Substance: INFLUENZA VIRUS VACCINE
     Indication: Influenza
     Dosage: INACTIVATED
     Dates: start: 20181006, end: 20181006
  67. INSULIN LISPRO [Concomitant]
     Active Substance: INSULIN LISPRO
     Indication: Diabetes mellitus
     Dates: start: 1998
  68. HYDROMORPHONE [Concomitant]
     Active Substance: HYDROMORPHONE
     Indication: Wrist fracture
     Dates: start: 20181219, end: 20181219
  69. KETOROLAC [Concomitant]
     Active Substance: KETOROLAC TROMETHAMINE
     Indication: Wrist fracture
     Dates: start: 20181219, end: 20181219
  70. MORPHINE [Concomitant]
     Active Substance: MORPHINE
     Indication: Wrist fracture
     Dates: start: 20181219, end: 20181219
  71. CEFEPIME [Concomitant]
     Active Substance: CEFEPIME HYDROCHLORIDE
     Dates: start: 20190125, end: 20190125
  72. PIPERACILLIN SODIUM\TAZOBACTAM SODIUM [Concomitant]
     Active Substance: PIPERACILLIN SODIUM\TAZOBACTAM SODIUM
     Dates: start: 20190125, end: 20190125
  73. MELATONIN [Concomitant]
     Active Substance: MELATONIN
     Dates: start: 20190126, end: 20190126
  74. LACTATED RINGERS SOLUTION [Concomitant]
     Active Substance: CALCIUM CHLORIDE\POTASSIUM CHLORIDE\SODIUM CHLORIDE\SODIUM LACTATE
     Indication: Hypotension
     Dates: start: 20190126, end: 20190127
  75. VENLAFAXINE [Concomitant]
     Active Substance: VENLAFAXINE HYDROCHLORIDE
     Indication: Depression
     Dates: start: 20190312

REACTIONS (3)
  - Addison^s disease [Recovered/Resolved]
  - Hypothyroidism [Recovered/Resolved]
  - Hyperthyroidism [Recovered/Resolved]

NARRATIVE: CASE EVENT DATE: 20180819
